FAERS Safety Report 8219610-9 (Version None)
Quarter: 2012Q1

REPORT INFORMATION
  Report Type: 
  Country: None (occurrence: None)
  Receive Date: 20120319
  Receipt Date: 20120309
  Transmission Date: 20120608
  Serious: Yes (Hospitalization)
  Sender: FDA-Public Use
  Company Number: NL-MEDIMMUNE-MEDI-0015175

PATIENT
  Sex: Female
  Weight: 4.82 kg

DRUGS (2)
  1. SYNAGIS [Suspect]
     Indication: PREMATURE BABY
     Route: 030
     Dates: start: 20120209, end: 20120209
  2. SYNAGIS [Suspect]
     Route: 030
     Dates: start: 20120309, end: 20120309

REACTIONS (5)
  - ROTAVIRUS INFECTION [None]
  - RESPIRATORY ARREST [None]
  - DIARRHOEA [None]
  - HYPOVENTILATION [None]
  - GASTROINTESTINAL PAIN [None]
